FAERS Safety Report 7569338-3 (Version None)
Quarter: 2011Q2

REPORT INFORMATION
  Report Type: 
  Country: None (occurrence: None)
  Receive Date: 20110623
  Receipt Date: 20110614
  Transmission Date: 20111010
  Serious: Yes (Death)
  Sender: FDA-Public Use
  Company Number: JP-PFIZER INC-2011126361

PATIENT
  Age: 83 Year
  Sex: Male
  Weight: 67 kg

DRUGS (2)
  1. CELECOXIB [Suspect]
     Indication: BACK PAIN
  2. CELECOXIB [Suspect]
     Indication: OSTEOARTHRITIS
     Dosage: 100 MG, 2X/DAY
     Route: 048
     Dates: start: 20090812, end: 20101022

REACTIONS (1)
  - DEATH [None]
